FAERS Safety Report 4897009-0 (Version None)
Quarter: 2005Q4

REPORT INFORMATION
  Report Type: 
  Country: None (occurrence: None)
  Receive Date: 20051228
  Receipt Date: 20050217
  Transmission Date: 20060501
  Serious: Yes (Hospitalization, Other)
  Sender: FDA-Public Use
  Company Number: USA050291172

PATIENT
  Age: 69 Year
  Sex: Female
  Weight: 67 kg

DRUGS (3)
  1. INSULIN [Suspect]
     Indication: DIABETES MELLITUS
     Dates: start: 19880101, end: 19880101
  2. INSULIN-NSULIN-ANIMAL (INSUL [Suspect]
     Indication: DIABETES MELLITUS
     Dates: start: 19880101, end: 19880101
  3. HUMULIN N [Suspect]
     Indication: DIABETES MELLITUS
     Dosage: 48 U DAY
     Dates: start: 19970101

REACTIONS (5)
  - CORNEAL TRANSPLANT [None]
  - DRUG HYPERSENSITIVITY [None]
  - EYE PAIN [None]
  - TREMOR [None]
  - VISUAL ACUITY REDUCED [None]
